FAERS Safety Report 11266453 (Version 1)
Quarter: 2015Q3

REPORT INFORMATION
  Report Type: Spontaneous
  Country: US (occurrence: US)
  Receive Date: 20150713
  Receipt Date: 20150713
  Transmission Date: 20151125
  Serious: Yes (Hospitalization)
  Sender: FDA-Public Use
  Company Number: US-PFIZER INC-2015227608

PATIENT
  Sex: Female

DRUGS (2)
  1. NIFEDIPINE. [Suspect]
     Active Substance: NIFEDIPINE
     Dosage: 60 MG, 1X/DAY
     Dates: start: 201404
  2. HYDROCHLOROTHIAZIDE. [Suspect]
     Active Substance: HYDROCHLOROTHIAZIDE
     Indication: BLOOD PRESSURE MEASUREMENT
     Dosage: 25 MG, 1X/DAY
     Dates: start: 201504

REACTIONS (3)
  - Drug hypersensitivity [Unknown]
  - Dysphagia [Unknown]
  - Dyspnoea [Unknown]
